FAERS Safety Report 8031544-1 (Version None)
Quarter: 2012Q1

REPORT INFORMATION
  Report Type: 
  Country: None (occurrence: None)
  Receive Date: 20120109
  Receipt Date: 20120106
  Transmission Date: 20120608
  Serious: Yes (Other)
  Sender: FDA-Public Use
  Company Number: US-ALLERGAN-1115000US

PATIENT
  Age: 54 Year
  Sex: Female

DRUGS (2)
  1. BACITRACIN [Concomitant]
     Indication: LACERATION
     Dosage: UNK
     Route: 061
  2. REFRESH PLUS [Suspect]
     Indication: DRY EYE
     Dosage: 1 DF, UNK
     Route: 047
     Dates: start: 20111101

REACTIONS (9)
  - PRURITUS [None]
  - OEDEMA PERIPHERAL [None]
  - URTICARIA [None]
  - VOMITING [None]
  - DISORIENTATION [None]
  - ERYTHEMA [None]
  - DYSPNOEA [None]
  - DIARRHOEA [None]
  - LIP SWELLING [None]
